FAERS Safety Report 4914844-0 (Version None)
Quarter: 2006Q1

REPORT INFORMATION
  Report Type: 
  Country: None (occurrence: None)
  Receive Date: 20060217
  Receipt Date: 20060207
  Transmission Date: 20060701
  Serious: Yes (Other)
  Sender: FDA-Public Use
  Company Number: CA-JNJFOC-20060201697

PATIENT
  Sex: Female
  Weight: 66.9 kg

DRUGS (4)
  1. REMICADE [Suspect]
     Indication: CROHN'S DISEASE
     Dosage: 4TH INFUSION
     Route: 042
  2. METHOTREXATE [Concomitant]
  3. HYDROCORTISONE [Concomitant]
     Indication: PREMEDICATION
     Route: 042
  4. BENADRYL [Concomitant]
     Indication: PREMEDICATION
     Route: 042

REACTIONS (9)
  - DYSPNOEA [None]
  - ERYTHEMA [None]
  - FACE OEDEMA [None]
  - INFUSION RELATED REACTION [None]
  - LACRIMATION INCREASED [None]
  - OXYGEN SATURATION DECREASED [None]
  - PARAESTHESIA ORAL [None]
  - RASH [None]
  - VOMITING [None]
